FAERS Safety Report 17681771 (Version 7)
Quarter: 2021Q1

REPORT INFORMATION
  Report Type: Report from Study
  Country: US (occurrence: US)
  Receive Date: 20200417
  Receipt Date: 20210102
  Transmission Date: 20210419
  Serious: No
  Sender: FDA-Public Use
  Company Number: NVSC2020US104067

PATIENT
  Sex: Male

DRUGS (1)
  1. COSENTYX [Suspect]
     Active Substance: SECUKINUMAB
     Indication: PSORIASIS
     Dosage: 300 MG, ONCE A WEEK FOR 5 WEEKS AND THEN Q4 WEEKS
     Route: 058

REACTIONS (9)
  - Psoriasis [Recovering/Resolving]
  - Dry skin [Not Recovered/Not Resolved]
  - Nail pitting [Recovering/Resolving]
  - Skin fissures [Not Recovered/Not Resolved]
  - Pruritus [Unknown]
  - Burning sensation [Unknown]
  - Therapeutic product effect incomplete [Recovering/Resolving]
  - Sensitive skin [Recovering/Resolving]
  - Product dose omission issue [Recovering/Resolving]
